FAERS Safety Report 7686647-8 (Version None)
Quarter: 2011Q3

REPORT INFORMATION
  Report Type: 
  Country: None (occurrence: None)
  Receive Date: 20110816
  Receipt Date: 20110816
  Transmission Date: 20111222
  Serious: Yes (Other)
  Sender: FDA-Public Use
  Company Number: None

PATIENT
  Age: 48 Year
  Sex: Male
  Weight: 77.11 kg

DRUGS (1)
  1. LANTUS [Suspect]
     Indication: DIABETES MELLITUS
     Dosage: 34
     Route: 040
     Dates: start: 20010407, end: 20100210

REACTIONS (3)
  - DRUG THERAPY CHANGED [None]
  - DIABETIC RETINOPATHY [None]
  - CONDITION AGGRAVATED [None]
